FAERS Safety Report 4578402-2 (Version None)
Quarter: 2005Q1

REPORT INFORMATION
  Report Type: 
  Country: None (occurrence: None)
  Receive Date: 20050209
  Receipt Date: 20050127
  Transmission Date: 20050727
  Serious: Yes (Other)
  Sender: FDA-Public Use
  Company Number: 2005-00138

PATIENT
  Age: 80 Year
  Sex: Female

DRUGS (2)
  1. VELCADE [Suspect]
     Indication: MULTIPLE MYELOMA
  2. COUMADIN [Concomitant]

REACTIONS (3)
  - CONDITION AGGRAVATED [None]
  - CONJUNCTIVITIS [None]
  - NEUROPATHY PERIPHERAL [None]
